FAERS Safety Report 13313106 (Version 7)
Quarter: 2017Q3

REPORT INFORMATION
  Report Type: Report from Study
  Country: US (occurrence: US)
  Receive Date: 20170309
  Receipt Date: 20170713
  Transmission Date: 20171127
  Serious: Yes (Hospitalization)
  Sender: FDA-Public Use
  Company Number: US-VIFOR (INTERNATIONAL) INC.-VIT-2017-02376

PATIENT
  Age: 68 Year
  Sex: Female
  Weight: 104.42 kg

DRUGS (37)
  1. TRAZODONE [Concomitant]
     Active Substance: TRAZODONE HYDROCHLORIDE
  2. STOOL SOFTENER (DOCUSATE) [Concomitant]
     Active Substance: DOCUSATE
  3. OXYCODONE [Concomitant]
     Active Substance: OXYCODONE
  4. VITAMINS NOS [Concomitant]
     Active Substance: VITAMINS
  5. METOPROLOL TARTRATE. [Concomitant]
     Active Substance: METOPROLOL TARTRATE
  6. HYDROXYZINE [Concomitant]
     Active Substance: HYDROXYZINE HYDROCHLORIDE
  7. ACETYLSALICYLIC ACID [Concomitant]
     Active Substance: ASPIRIN
  8. TRIAMCINOLONE [Concomitant]
     Active Substance: TRIAMCINOLONE
  9. SUCRALFATE. [Concomitant]
     Active Substance: SUCRALFATE
  10. NARATRIPTAN [Concomitant]
     Active Substance: NARATRIPTAN HYDROCHLORIDE
  11. LORATADINE. [Concomitant]
     Active Substance: LORATADINE
  12. FLUTICASONE PROPIONATE. [Concomitant]
     Active Substance: FLUTICASONE PROPIONATE
  13. ZOLPIDEM [Concomitant]
     Active Substance: ZOLPIDEM\ZOLPIDEM TARTRATE
  14. TIZANIDINE. [Concomitant]
     Active Substance: TIZANIDINE
  15. MAGNESIUM [Concomitant]
     Active Substance: MAGNESIUM
  16. FENTANYL. [Concomitant]
     Active Substance: FENTANYL
  17. CYANOCOBALAMIN. [Concomitant]
     Active Substance: CYANOCOBALAMIN
  18. FOLIC ACID. [Concomitant]
     Active Substance: FOLIC ACID
  19. OMEPRAZOLE. [Concomitant]
     Active Substance: OMEPRAZOLE
  20. IRON [Concomitant]
     Active Substance: IRON
  21. GABAPENTIN. [Concomitant]
     Active Substance: GABAPENTIN
     Indication: NERVE INJURY
  22. ALENDRONATE SODIUM. [Concomitant]
     Active Substance: ALENDRONATE SODIUM
  23. SALBUTAMOL [Concomitant]
     Active Substance: ALBUTEROL
  24. ERGOCALCIFEROL. [Concomitant]
     Active Substance: ERGOCALCIFEROL
  25. TROKENDI [Concomitant]
     Active Substance: TOPIRAMATE
  26. RANITIDINE. [Concomitant]
     Active Substance: RANITIDINE
  27. PROAIR HFA [Concomitant]
     Active Substance: ALBUTEROL SULFATE
  28. CALCIUM GLUCONATE. [Concomitant]
     Active Substance: CALCIUM GLUCONATE
  29. PROMETHAZINE [Concomitant]
     Active Substance: PROMETHAZINE\PROMETHAZINE HYDROCHLORIDE
  30. NORTRIPTYLINE HYDROCHLORIDE. [Concomitant]
     Active Substance: NORTRIPTYLINE HYDROCHLORIDE
  31. AMLODIPINE [Concomitant]
     Active Substance: AMLODIPINE BESYLATE
  32. AMLODIPINE [Concomitant]
     Active Substance: AMLODIPINE BESYLATE
     Indication: HYPERTENSION
  33. VELTASSA [Suspect]
     Active Substance: PATIROMER
     Indication: HYPERKALAEMIA
     Route: 048
     Dates: start: 20170227
  34. VELTASSA [Suspect]
     Active Substance: PATIROMER
     Route: 048
     Dates: start: 201703
  35. ASCORBIC ACID. [Concomitant]
     Active Substance: ASCORBIC ACID
  36. MEDOCRINE [Concomitant]
  37. GABAPENTIN. [Concomitant]
     Active Substance: GABAPENTIN
     Indication: HYPERSENSITIVITY

REACTIONS (13)
  - Postural orthostatic tachycardia syndrome [Recovered/Resolved]
  - Heart rate increased [Recovering/Resolving]
  - Atrial fibrillation [Recovering/Resolving]
  - Hypotension [Recovering/Resolving]
  - Kidney infection [Recovering/Resolving]
  - Blood magnesium decreased [Recovering/Resolving]
  - Pneumonia [Recovered/Resolved]
  - Blood iron decreased [Recovering/Resolving]
  - Sepsis [Recovered/Resolved]
  - Bronchitis [Recovering/Resolving]
  - Chronic kidney disease [Recovering/Resolving]
  - Skin discolouration [Recovering/Resolving]
  - Blood potassium increased [Recovered/Resolved]

NARRATIVE: CASE EVENT DATE: 2017
